FAERS Safety Report 24539996 (Version 4)
Quarter: 2025Q4

REPORT INFORMATION
  Report Type: Report from Study
  Country: EU (occurrence: EU)
  Receive Date: 20241023
  Receipt Date: 20251010
  Transmission Date: 20260118
  Serious: Yes (Hospitalization, Other)
  Sender: ABBVIE
  Company Number: EU-ABBVIE-5967164

PATIENT
  Age: 70 Year
  Sex: Female

DRUGS (5)
  1. RINVOQ [Suspect]
     Active Substance: UPADACITINIB
     Indication: Rheumatoid arthritis
     Route: 048
     Dates: start: 202206, end: 202409
  2. RAMIPRIL [Concomitant]
     Active Substance: RAMIPRIL
     Indication: Product used for unknown indication
  3. PREDNISOLONE [Concomitant]
     Active Substance: PREDNISOLONE
     Indication: Product used for unknown indication
     Dosage: 4 MG 3/4-0-0
  4. ALLOPURINOL [Concomitant]
     Active Substance: ALLOPURINOL
     Indication: Product used for unknown indication
     Dosage: 1-0-0,
  5. PANTOPRAZOLE [Concomitant]
     Active Substance: PANTOPRAZOLE
     Indication: Product used for unknown indication
     Dosage: 1-0-0

REACTIONS (17)
  - Hepatic cancer metastatic [Not Recovered/Not Resolved]
  - Craniocerebral injury [Unknown]
  - Bile duct cancer [Unknown]
  - Gastrointestinal adenocarcinoma [Not Recovered/Not Resolved]
  - Unevaluable event [Not Recovered/Not Resolved]
  - Adenocarcinoma metastatic [Not Recovered/Not Resolved]
  - Abdominal pain upper [Unknown]
  - Liver function test increased [Unknown]
  - Vomiting [Unknown]
  - Aortic aneurysm [Unknown]
  - Diverticulum [Unknown]
  - Emphysema [Unknown]
  - Osteochondrosis [Unknown]
  - Ovarian cyst [Unknown]
  - Fall [Unknown]
  - Haematoma [Unknown]
  - Syncope [Unknown]

NARRATIVE: CASE EVENT DATE: 20240101
